FAERS Safety Report 25505564 (Version 1)
Quarter: 2025Q3

REPORT INFORMATION
  Report Type: Spontaneous
  Country: EU (occurrence: EU)
  Receive Date: 20250702
  Receipt Date: 20250702
  Transmission Date: 20251020
  Serious: Yes (Life-Threatening, Hospitalization, Other)
  Sender: MYLAN
  Company Number: EU-SANDOZ-SDZ2024IT040255

PATIENT
  Age: 16 Year
  Sex: Male

DRUGS (40)
  1. ALLOPURINOL [Suspect]
     Active Substance: ALLOPURINOL
     Indication: Hyperuricaemia
     Dosage: 100 MILLIGRAM, QD
  2. ALLOPURINOL [Suspect]
     Active Substance: ALLOPURINOL
     Dosage: 100 MILLIGRAM, QD
     Route: 065
  3. ALLOPURINOL [Suspect]
     Active Substance: ALLOPURINOL
     Dosage: 100 MILLIGRAM, QD
     Route: 065
  4. ALLOPURINOL [Suspect]
     Active Substance: ALLOPURINOL
     Dosage: 100 MILLIGRAM, QD
  5. ACETAMINOPHEN [Suspect]
     Active Substance: ACETAMINOPHEN
     Indication: Pyrexia
  6. ACETAMINOPHEN [Suspect]
     Active Substance: ACETAMINOPHEN
     Route: 042
  7. ACETAMINOPHEN [Suspect]
     Active Substance: ACETAMINOPHEN
     Route: 042
  8. ACETAMINOPHEN [Suspect]
     Active Substance: ACETAMINOPHEN
  9. DAPTOMYCIN [Concomitant]
     Active Substance: DAPTOMYCIN
     Indication: Antibiotic therapy
     Dosage: 10 MILLIGRAM/KILOGRAM, QD
  10. DAPTOMYCIN [Concomitant]
     Active Substance: DAPTOMYCIN
     Dosage: 10 MILLIGRAM/KILOGRAM, QD
     Route: 042
  11. DAPTOMYCIN [Concomitant]
     Active Substance: DAPTOMYCIN
     Dosage: 10 MILLIGRAM/KILOGRAM, QD
     Route: 042
  12. DAPTOMYCIN [Concomitant]
     Active Substance: DAPTOMYCIN
     Dosage: 10 MILLIGRAM/KILOGRAM, QD
  13. MEROPENEM [Concomitant]
     Active Substance: MEROPENEM
     Indication: Product used for unknown indication
     Dosage: 20 MILLIGRAM/KILOGRAM, Q8H
  14. MEROPENEM [Concomitant]
     Active Substance: MEROPENEM
     Dosage: 20 MILLIGRAM/KILOGRAM, Q8H
     Route: 042
  15. MEROPENEM [Concomitant]
     Active Substance: MEROPENEM
     Dosage: 20 MILLIGRAM/KILOGRAM, Q8H
     Route: 042
  16. MEROPENEM [Concomitant]
     Active Substance: MEROPENEM
     Dosage: 20 MILLIGRAM/KILOGRAM, Q8H
  17. PREDNISONE [Concomitant]
     Active Substance: PREDNISONE
     Indication: Product used for unknown indication
     Dosage: 1 MILLIGRAM/KILOGRAM, BID
  18. PREDNISONE [Concomitant]
     Active Substance: PREDNISONE
     Dosage: 1 MILLIGRAM/KILOGRAM, BID
     Route: 048
  19. PREDNISONE [Concomitant]
     Active Substance: PREDNISONE
     Dosage: 1 MILLIGRAM/KILOGRAM, BID
     Route: 048
  20. PREDNISONE [Concomitant]
     Active Substance: PREDNISONE
     Dosage: 1 MILLIGRAM/KILOGRAM, BID
  21. CALCITONIN [Concomitant]
     Active Substance: CALCITONIN
     Indication: Skin infection
  22. CALCITONIN [Concomitant]
     Active Substance: CALCITONIN
     Route: 065
  23. CALCITONIN [Concomitant]
     Active Substance: CALCITONIN
     Route: 065
  24. CALCITONIN [Concomitant]
     Active Substance: CALCITONIN
  25. METHYLPREDNISOLONE [Concomitant]
     Active Substance: METHYLPREDNISOLONE
     Indication: Product used for unknown indication
     Dosage: 1.3 MILLIGRAM/KILOGRAM, BID
  26. METHYLPREDNISOLONE [Concomitant]
     Active Substance: METHYLPREDNISOLONE
     Dosage: 1.3 MILLIGRAM/KILOGRAM, BID
     Route: 042
  27. METHYLPREDNISOLONE [Concomitant]
     Active Substance: METHYLPREDNISOLONE
     Dosage: 1.3 MILLIGRAM/KILOGRAM, BID
     Route: 042
  28. METHYLPREDNISOLONE [Concomitant]
     Active Substance: METHYLPREDNISOLONE
     Dosage: 1.3 MILLIGRAM/KILOGRAM, BID
  29. RITUXIMAB [Concomitant]
     Active Substance: RITUXIMAB
     Indication: Acute kidney injury
  30. RITUXIMAB [Concomitant]
     Active Substance: RITUXIMAB
     Route: 065
  31. RITUXIMAB [Concomitant]
     Active Substance: RITUXIMAB
     Route: 065
  32. RITUXIMAB [Concomitant]
     Active Substance: RITUXIMAB
  33. LOSARTAN [Concomitant]
     Active Substance: LOSARTAN
     Indication: Hypertension
     Dosage: 12.5 MILLIGRAM, QD
  34. LOSARTAN [Concomitant]
     Active Substance: LOSARTAN
     Dosage: 12.5 MILLIGRAM, QD
     Route: 065
  35. LOSARTAN [Concomitant]
     Active Substance: LOSARTAN
     Dosage: 12.5 MILLIGRAM, QD
     Route: 065
  36. LOSARTAN [Concomitant]
     Active Substance: LOSARTAN
     Dosage: 12.5 MILLIGRAM, QD
  37. RAMIPRIL [Concomitant]
     Active Substance: RAMIPRIL
     Indication: Hypertension
     Dosage: 5 MILLIGRAM, QD
  38. RAMIPRIL [Concomitant]
     Active Substance: RAMIPRIL
     Dosage: 5 MILLIGRAM, QD
     Route: 065
  39. RAMIPRIL [Concomitant]
     Active Substance: RAMIPRIL
     Dosage: 5 MILLIGRAM, QD
     Route: 065
  40. RAMIPRIL [Concomitant]
     Active Substance: RAMIPRIL
     Dosage: 5 MILLIGRAM, QD

REACTIONS (2)
  - Drug reaction with eosinophilia and systemic symptoms [Recovered/Resolved]
  - Drug ineffective [Unknown]
